FAERS Safety Report 25628464 (Version 1)
Quarter: 2025Q3

REPORT INFORMATION
  Report Type: Spontaneous
  Country: US (occurrence: US)
  Receive Date: 20250731
  Receipt Date: 20250731
  Transmission Date: 20251021
  Serious: No
  Sender: Alora Pharma
  Company Number: US-VERTICAL PHARMACEUTICALS-2025ALO02212

PATIENT
  Sex: Female
  Weight: 79.819 kg

DRUGS (4)
  1. ESTRADIOL [Suspect]
     Active Substance: ESTRADIOL
     Indication: Hot flush
     Dosage: 0.5 MG, 1X/DAY ON LEG (INNER THIGH) [FILL DATE 08-SEP-2024
     Route: 061
     Dates: start: 2024
  2. ESTRADIOL [Suspect]
     Active Substance: ESTRADIOL
     Dosage: 0.5 MG, 1X/DAY ON LEG (INNER THIGH) [08-MAR-2025]
     Route: 061
     Dates: start: 2025, end: 2025
  3. ESTRADIOL [Suspect]
     Active Substance: ESTRADIOL
     Dosage: 0.5 MG, 1X/DAY ON LEG (INNER THIGH) [EXPIRED PRODUCT]
     Route: 061
     Dates: start: 2025
  4. ESTRADIOL [Suspect]
     Active Substance: ESTRADIOL
     Indication: Hot flush
     Route: 061
     Dates: start: 202408, end: 2024

REACTIONS (4)
  - Hot flush [Not Recovered/Not Resolved]
  - Therapeutic product effect decreased [Not Recovered/Not Resolved]
  - Expired product administered [Not Recovered/Not Resolved]
  - Product quality issue [Unknown]

NARRATIVE: CASE EVENT DATE: 20250101
